FAERS Safety Report 11095968 (Version 2)
Quarter: 2015Q2

REPORT INFORMATION
  Report Type: Spontaneous
  Country: ES (occurrence: None)
  Receive Date: 20150505
  Receipt Date: 20150515
  Transmission Date: 20150821
  Serious: Yes (Hospitalization)
  Sender: FDA-Public Use
  Company Number: BD-2015-0294

PATIENT
  Age: 66 Year
  Sex: Female

DRUGS (14)
  1. PREDNISONE (PREDNISONE) [Suspect]
     Active Substance: PREDNISONE
     Indication: INFECTION
     Route: 048
  2. MIANSERIN [Suspect]
     Active Substance: MIANSERIN
     Indication: DEPRESSION
     Route: 048
  3. QUETIAPINE (QUETIAPINE) [Suspect]
     Active Substance: QUETIAPINE
     Indication: DEPRESSION
     Route: 048
  4. METOCLOPRAMIDE. [Suspect]
     Active Substance: METOCLOPRAMIDE
     Indication: INFECTION
     Route: 048
  5. FLUMIL (ACETYLCYSTEINE) [Suspect]
     Active Substance: ACETYLCYSTEINE
     Indication: INFECTION
     Route: 048
  6. CICLOFALINA (PIRACETAM) [Suspect]
     Active Substance: PIRACETAM
     Indication: INFECTION
     Route: 048
  7. MIANSERIN [Suspect]
     Active Substance: MIANSERIN
     Indication: POOR QUALITY SLEEP
     Route: 048
  8. OMEPRAZOLE (OMEPRAZOLE) [Suspect]
     Active Substance: OMEPRAZOLE
     Indication: INFECTION
     Route: 048
  9. SEGURIL (FUROSEMIDE) [Suspect]
     Active Substance: FUROSEMIDE
     Indication: INFECTION
     Route: 042
  10. MEROPENEM (MEROPENEM) [Suspect]
     Active Substance: MEROPENEM
     Indication: INFECTION
     Route: 042
  11. CLEXANE (ENOXAPARIN SODIUM) [Suspect]
     Active Substance: ENOXAPARIN SODIUM
     Indication: INFECTION
     Route: 058
  12. LINEZOLID (LINEZOLID) [Suspect]
     Active Substance: LINEZOLID
     Indication: INFECTION
     Route: 042
  13. QUETIAPINE (QUETIAPINE) [Suspect]
     Active Substance: QUETIAPINE
     Indication: POOR QUALITY SLEEP
     Route: 048
  14. POTASION (POTASSIUM CHLORIDE) [Suspect]
     Active Substance: POTASSIUM CHLORIDE
     Indication: INFECTION
     Route: 048

REACTIONS (18)
  - Dizziness [None]
  - Oxygen saturation decreased [None]
  - Confusional state [None]
  - Contraindication to medical treatment [None]
  - Malnutrition [None]
  - Medication error [None]
  - Tremor [None]
  - Respiratory distress [None]
  - Sedation [None]
  - Aspiration bronchial [None]
  - Palpitations [None]
  - Infection [None]
  - Protein deficiency [None]
  - Electrolyte imbalance [None]
  - Fatigue [None]
  - Altered state of consciousness [None]
  - Loss of consciousness [None]
  - Depression [None]

NARRATIVE: CASE EVENT DATE: 20140618
